FAERS Safety Report 4340697-8 (Version None)
Quarter: 2004Q2

REPORT INFORMATION
  Report Type: 
  Country: None (occurrence: None)
  Receive Date: 20040413
  Receipt Date: 20040330
  Transmission Date: 20050107
  Serious: Yes (Other)
  Sender: FDA-Public Use
  Company Number: 2004-BP-02296BP

PATIENT
  Age: 66 Year
  Sex: Male

DRUGS (6)
  1. MIRAPEX [Suspect]
     Indication: PARKINSON'S DISEASE
     Dosage: SEE IMAGE
     Route: 048
  2. SINEMET [Concomitant]
  3. PARLODEL [Concomitant]
  4. ELDEPRYL [Concomitant]
  5. ATIVAN [Concomitant]
  6. KLONOPIN [Concomitant]

REACTIONS (6)
  - COLON CANCER [None]
  - DELUSION [None]
  - HALLUCINATION [None]
  - LOSS OF CONSCIOUSNESS [None]
  - MURDER [None]
  - PROSTATE CANCER [None]
